FAERS Safety Report 13892266 (Version 1)
Quarter: 2017Q3

REPORT INFORMATION
  Report Type: Spontaneous
  Country: US (occurrence: US)
  Receive Date: 20170822
  Receipt Date: 20170822
  Transmission Date: 20171127
  Serious: No
  Sender: FDA-Public Use
  Company Number: US-ENDO PHARMACEUTICALS INC-2017-000346

PATIENT
  Age: 30 Year
  Sex: Male
  Weight: 106.12 kg

DRUGS (4)
  1. TESTOPEL [Suspect]
     Active Substance: TESTOSTERONE
     Dosage: 450 MG, 6 PELLETS IN THE GLUTEUS MUSCLE, ALTERNATING SIDES
     Route: 065
     Dates: start: 201604
  2. TESTOPEL [Suspect]
     Active Substance: TESTOSTERONE
     Indication: BLOOD TESTOSTERONE DECREASED
     Dosage: 750 MG, 10 PELLETS IN THE GLUTEUS MUSCLE, ALTERNATING SIDES
     Route: 065
     Dates: start: 201601
  3. TESTOPEL [Suspect]
     Active Substance: TESTOSTERONE
     Dosage: 825 MG, 11 PELLETS IN THE GLUTEUS MUSCLE ON THE LEFT SIDE
     Route: 065
     Dates: start: 201610
  4. TESTOPEL [Suspect]
     Active Substance: TESTOSTERONE
     Dosage: 450 MG, 6 PELLETS IN THE GLUTEUS MUSCLE, ALTERNATING SIDES
     Route: 065
     Dates: start: 201607

REACTIONS (5)
  - Expulsion of medication [Unknown]
  - Implant site vesicles [Unknown]
  - Impaired healing [Unknown]
  - Implant site scar [Unknown]
  - Prescribed overdose [Not Recovered/Not Resolved]

NARRATIVE: CASE EVENT DATE: 201601
